FAERS Safety Report 15120101 (Version 5)
Quarter: 2018Q4

REPORT INFORMATION
  Report Type: Report from Study
  Country: US (occurrence: US)
  Receive Date: 20180709
  Receipt Date: 20181008
  Transmission Date: 20190204
  Serious: Yes (Life-Threatening, Hospitalization)
  Sender: FDA-Public Use
  Company Number: US-ROCHE-2150513

PATIENT
  Age: 77 Year
  Sex: Male
  Weight: 93 kg

DRUGS (82)
  1. HEMP OIL [Concomitant]
     Active Substance: CANNABIS SATIVA SEED OIL
     Dosage: DROPS
     Route: 048
     Dates: start: 20171006
  2. TROSPIUM [Concomitant]
     Active Substance: TROSPIUM
     Route: 048
     Dates: start: 20180706, end: 20180706
  3. CARDIOPLEGIA [Concomitant]
     Active Substance: CALCIUM CHLORIDE\MAGNESIUM CHLORIDE\POTASSIUM CHLORIDE\PROCAINE HCL\SODIUM CL
     Route: 042
     Dates: start: 20180707, end: 20180707
  4. LACTATED RINGERS SOLUTION [Concomitant]
     Active Substance: CALCIUM CHLORIDE\POTASSIUM CHLORIDE\SODIUM CHLORIDE\SODIUM LACTATE
     Route: 042
     Dates: start: 20180707, end: 20180707
  5. ASCORBIC ACID. [Concomitant]
     Active Substance: ASCORBIC ACID
     Route: 048
     Dates: start: 20180703, end: 20180703
  6. PEPCID (UNITED STATES) [Concomitant]
     Route: 048
     Dates: start: 20130715
  7. LISINOPRIL. [Concomitant]
     Active Substance: LISINOPRIL
     Route: 048
     Dates: start: 20170313
  8. TYLENOL [Concomitant]
     Active Substance: ACETAMINOPHEN
     Route: 048
     Dates: start: 20171005
  9. VITAMIN D3 [Concomitant]
     Active Substance: CHOLECALCIFEROL
     Route: 048
     Dates: start: 20171130
  10. MAGNESIUM OXIDE. [Concomitant]
     Active Substance: MAGNESIUM OXIDE
     Route: 048
     Dates: start: 20170914
  11. MAGNESIUM OXIDE. [Concomitant]
     Active Substance: MAGNESIUM OXIDE
     Route: 048
     Dates: start: 20180703, end: 20180703
  12. FERROUS SULFATE. [Concomitant]
     Active Substance: FERROUS SULFATE
     Route: 048
     Dates: start: 20171228, end: 20180702
  13. ISOLYTE S [Concomitant]
     Active Substance: MAGNESIUM CHLORIDE\POTASSIUM CHLORIDE\SODIUM ACETATE\SODIUM CHLORIDE\SODIUM GLUCONATE
     Route: 042
     Dates: start: 20180707, end: 20180707
  14. CALCIUM CHLORIDE. [Concomitant]
     Active Substance: CALCIUM CHLORIDE
     Route: 042
     Dates: start: 20180707, end: 20180707
  15. MANNITOL. [Concomitant]
     Active Substance: MANNITOL
     Route: 042
     Dates: start: 20180707, end: 20180707
  16. METOPROLOL. [Concomitant]
     Active Substance: METOPROLOL
     Route: 048
     Dates: start: 20180706, end: 20180706
  17. MORPHINE SULFATE. [Concomitant]
     Active Substance: MORPHINE SULFATE
     Route: 042
     Dates: start: 20180710, end: 20180710
  18. NORCO [Concomitant]
     Active Substance: ACETAMINOPHEN\HYDROCODONE BITARTRATE
     Route: 048
     Dates: start: 20180712, end: 20180712
  19. OMEPRAZOLE. [Concomitant]
     Active Substance: OMEPRAZOLE
     Route: 048
     Dates: start: 20180708, end: 20180708
  20. AMIODARONE [Concomitant]
     Active Substance: AMIODARONE
     Route: 042
     Dates: start: 20180707, end: 20180707
  21. INSULIN [Concomitant]
     Active Substance: INSULIN NOS
     Dosage: 2 UNITS
     Route: 058
     Dates: start: 20180708, end: 20180712
  22. ASPIRIN. [Concomitant]
     Active Substance: ASPIRIN
     Route: 048
     Dates: start: 20180702, end: 20180702
  23. ZOMETA [Concomitant]
     Active Substance: ZOLEDRONIC ACID
     Route: 042
     Dates: start: 20171207
  24. TERAZOSIN [Concomitant]
     Active Substance: TERAZOSIN\TERAZOSIN HYDROCHLORIDE
     Route: 042
     Dates: start: 20180706, end: 20180706
  25. DILTIAZEM. [Concomitant]
     Active Substance: DILTIAZEM
     Route: 042
     Dates: start: 20180702, end: 20180702
  26. LATANOPROST. [Concomitant]
     Active Substance: LATANOPROST
     Route: 047
     Dates: start: 20180711, end: 20180711
  27. MAGNESIUM CITRATE. [Concomitant]
     Active Substance: MAGNESIUM CITRATE
     Route: 048
     Dates: start: 20180711, end: 20180711
  28. METOPROLOL. [Concomitant]
     Active Substance: METOPROLOL
     Route: 048
     Dates: start: 20180712, end: 20180712
  29. AMIODARONE [Concomitant]
     Active Substance: AMIODARONE
     Route: 042
     Dates: start: 20180707, end: 20180707
  30. AMIODARONE [Concomitant]
     Active Substance: AMIODARONE
     Route: 048
     Dates: start: 20180712, end: 20180712
  31. CLINDAMYCIN. [Concomitant]
     Active Substance: CLINDAMYCIN
     Route: 042
     Dates: start: 20180705, end: 20180705
  32. DOCUSATE [Concomitant]
     Active Substance: DOCUSATE
     Route: 048
     Dates: start: 20180706, end: 20180712
  33. ATEZOLIZUMAB. [Suspect]
     Active Substance: ATEZOLIZUMAB
     Indication: HORMONE-REFRACTORY PROSTATE CANCER
     Dosage: DATE OF MOST RECENT DOSE OF ATEZOLIZUMAB PRIOR TO THE ONSET OF LIFE THREATENING CARDIAC DISORDER: AF
     Route: 042
     Dates: start: 20170713
  34. PEPCID (UNITED STATES) [Concomitant]
     Route: 048
     Dates: start: 20180706, end: 20180706
  35. ASPIRIN. [Concomitant]
     Active Substance: ASPIRIN
     Route: 048
     Dates: start: 20180708, end: 20180708
  36. SENOKOT [Concomitant]
     Active Substance: SENNOSIDES
     Route: 048
     Dates: start: 20180711, end: 20180711
  37. ENOXAPARIN [Concomitant]
     Active Substance: ENOXAPARIN
     Route: 058
     Dates: start: 20180702, end: 20180702
  38. PAPAVERINE [Concomitant]
     Active Substance: PAPAVERINE
     Route: 061
     Dates: start: 20180707, end: 20180707
  39. HEPARIN [Concomitant]
     Active Substance: HEPARIN SODIUM
     Dosage: 5000 UNITS
     Route: 058
     Dates: start: 20180707, end: 20180712
  40. LACTULOSE. [Concomitant]
     Active Substance: LACTULOSE
     Route: 048
     Dates: start: 20180709, end: 20180710
  41. MORPHINE SULFATE. [Concomitant]
     Active Substance: MORPHINE SULFATE
     Route: 042
     Dates: start: 20180708, end: 20180708
  42. CEFAZOLIN [Concomitant]
     Active Substance: CEFAZOLIN
     Route: 042
     Dates: start: 20180707, end: 20180707
  43. ENZALUTAMIDE [Suspect]
     Active Substance: ENZALUTAMIDE
     Indication: HORMONE-REFRACTORY PROSTATE CANCER
     Dosage: DATE OF MOST RECENT DOSE (160 MG) OF SUSPECTED ENZALUTAMIDE PRIOR TO THE ONSET OF LIFE THREATENING C
     Route: 048
     Dates: start: 20170713
  44. LIPITOR [Concomitant]
     Active Substance: ATORVASTATIN CALCIUM
     Route: 048
     Dates: start: 20180703, end: 20180711
  45. LISINOPRIL. [Concomitant]
     Active Substance: LISINOPRIL
     Route: 048
     Dates: start: 20180703, end: 20180703
  46. ASPIRIN. [Concomitant]
     Active Substance: ASPIRIN
     Route: 048
     Dates: start: 20180703, end: 20180703
  47. MAGNESIUM OXIDE. [Concomitant]
     Active Substance: MAGNESIUM OXIDE
     Route: 048
     Dates: start: 20180704, end: 20180705
  48. MOTRIN [Concomitant]
     Active Substance: IBUPROFEN
     Route: 048
     Dates: start: 20180118
  49. ONDANSETRON [Concomitant]
     Active Substance: ONDANSETRON
     Route: 042
     Dates: start: 20180708, end: 20180708
  50. SODIUM CHLORIDE. [Concomitant]
     Active Substance: SODIUM CHLORIDE
     Route: 042
     Dates: start: 20180702, end: 20180708
  51. SODIUM BICARBONATE. [Concomitant]
     Active Substance: SODIUM BICARBONATE
     Route: 042
     Dates: start: 20180707, end: 20180707
  52. CHLORHEXIDINE GLUCONATE. [Concomitant]
     Active Substance: CHLORHEXIDINE GLUCONATE
     Route: 061
     Dates: start: 20180703, end: 20180711
  53. ACETAMINOPHEN. [Concomitant]
     Active Substance: ACETAMINOPHEN
     Route: 042
     Dates: start: 20180707, end: 20180708
  54. PLAVIX [Concomitant]
     Active Substance: CLOPIDOGREL BISULFATE
     Route: 048
     Dates: start: 20180712, end: 20180712
  55. LIPITOR [Concomitant]
     Active Substance: ATORVASTATIN CALCIUM
     Route: 048
     Dates: start: 20170327
  56. HYTRIN [Concomitant]
     Active Substance: TERAZOSIN HYDROCHLORIDE
     Route: 048
     Dates: start: 20151231
  57. ASPIRIN. [Concomitant]
     Active Substance: ASPIRIN
     Route: 048
     Dates: start: 20150816
  58. ASPIRIN. [Concomitant]
     Active Substance: ASPIRIN
     Route: 048
     Dates: start: 20180704, end: 20180712
  59. PERCOCET [Concomitant]
     Active Substance: ACETAMINOPHEN\OXYCODONE HYDROCHLORIDE
     Route: 048
     Dates: start: 20180708, end: 20180708
  60. POTASSIUM CHLORIDE. [Concomitant]
     Active Substance: POTASSIUM CHLORIDE
     Route: 048
     Dates: start: 20180703, end: 20180706
  61. POTASSIUM CHLORIDE. [Concomitant]
     Active Substance: POTASSIUM CHLORIDE
     Route: 048
     Dates: start: 20180704, end: 20180712
  62. TROSPIUM [Concomitant]
     Active Substance: TROSPIUM
     Route: 048
     Dates: start: 20180712, end: 20180712
  63. FUROSEMIDE. [Concomitant]
     Active Substance: FUROSEMIDE
     Route: 048
     Dates: start: 20180703, end: 20180703
  64. XTANDI [Concomitant]
     Active Substance: ENZALUTAMIDE
     Route: 048
     Dates: start: 20180703, end: 20180711
  65. MAGNESIUM SULFATE. [Concomitant]
     Active Substance: MAGNESIUM SULFATE
     Route: 042
     Dates: start: 20180708, end: 20180708
  66. ALBUTEROL. [Concomitant]
     Active Substance: ALBUTEROL
     Route: 050
     Dates: start: 20180707, end: 20180707
  67. PEPCID (UNITED STATES) [Concomitant]
     Route: 042
     Dates: start: 20180708, end: 20180708
  68. FUROSEMIDE. [Concomitant]
     Active Substance: FUROSEMIDE
     Route: 042
     Dates: start: 20180709, end: 20180709
  69. LIDOCAINE. [Concomitant]
     Active Substance: LIDOCAINE
     Route: 042
     Dates: start: 20180707, end: 20180707
  70. HEPARIN [Concomitant]
     Active Substance: HEPARIN SODIUM
     Dosage: 100 UNITS
     Route: 042
     Dates: start: 20180704, end: 20180707
  71. INSULIN [Concomitant]
     Active Substance: INSULIN NOS
     Dosage: 100 UNIT
     Route: 042
     Dates: start: 20180708, end: 20180708
  72. LABETALOL [Concomitant]
     Active Substance: LABETALOL\LABETALOL HYDROCHLORIDE
     Route: 048
     Dates: start: 20170612, end: 20180702
  73. SANCTURA [Concomitant]
     Active Substance: TROSPIUM CHLORIDE
     Route: 048
     Dates: start: 20160507
  74. LASIX [Concomitant]
     Active Substance: FUROSEMIDE
     Route: 048
     Dates: start: 20170831
  75. POTASSIUM CHLORIDE. [Concomitant]
     Active Substance: POTASSIUM CHLORIDE
     Route: 042
     Dates: start: 20180707, end: 20180707
  76. TERAZOSIN [Concomitant]
     Active Substance: TERAZOSIN\TERAZOSIN HYDROCHLORIDE
     Route: 048
     Dates: start: 20180711, end: 20180711
  77. DILTIAZEM. [Concomitant]
     Active Substance: DILTIAZEM
     Route: 048
     Dates: start: 20180702, end: 20180702
  78. DILTIAZEM. [Concomitant]
     Active Substance: DILTIAZEM
     Route: 042
     Dates: start: 20180702, end: 20180702
  79. ALBUMIN [Concomitant]
     Active Substance: ALBUMIN HUMAN
     Route: 042
     Dates: start: 20180707, end: 20180707
  80. PHENYLEPHRINE [Concomitant]
     Active Substance: PHENYLEPHRINE\PHENYLEPHRINE HYDROCHLORIDE
     Route: 042
     Dates: start: 20180707, end: 20180707
  81. ISORDIL [Concomitant]
     Active Substance: ISOSORBIDE DINITRATE
     Route: 048
     Dates: start: 20180706, end: 20180706
  82. NORCO [Concomitant]
     Active Substance: ACETAMINOPHEN\HYDROCODONE BITARTRATE
     Route: 048
     Dates: start: 20180712, end: 20180712

REACTIONS (1)
  - Atrial fibrillation [Recovered/Resolved]

NARRATIVE: CASE EVENT DATE: 20180702
